FAERS Safety Report 5128290-0 (Version None)
Quarter: 2006Q4

REPORT INFORMATION
  Report Type: 
  Country: None (occurrence: None)
  Receive Date: 20061011
  Receipt Date: 20060920
  Transmission Date: 20070319
  Serious: Yes (Hospitalization)
  Sender: FDA-Public Use
  Company Number: US200609005353

PATIENT
  Age: 25 Year
  Sex: Female

DRUGS (3)
  1. HUMULIN R [Suspect]
     Indication: DIABETES MELLITUS
     Dosage: 10 U, EACH EVENING
  2. HUMULIN N [Suspect]
     Indication: DIABETES MELLITUS
     Dosage: SEE IMAGE
     Dates: start: 20060919
  3. HUMULIN U [Suspect]
     Indication: DIABETES MELLITUS
     Dosage: DAILY (1/D)
     Dates: start: 19970101, end: 20060918

REACTIONS (6)
  - BLOOD GLUCOSE INCREASED [None]
  - LOCALISED INFECTION [None]
  - OVARIAN FAILURE [None]
  - SINUSITIS [None]
  - STOMACH DISCOMFORT [None]
  - THYROID DISORDER [None]
